FAERS Safety Report 15808632 (Version 1)
Quarter: 2019Q1

REPORT INFORMATION
  Report Type: Spontaneous
  Country: US (occurrence: US)
  Receive Date: 20190110
  Receipt Date: 20190110
  Transmission Date: 20190417
  Serious: Yes (Other)
  Sender: FDA-Public Use
  Company Number: US-SA-2019SA006395

PATIENT
  Age: 77 Year
  Sex: Male

DRUGS (3)
  1. JEVTANA [Suspect]
     Active Substance: CABAZITAXEL
     Dosage: UNK, QCY
     Dates: start: 20180418, end: 20180418
  2. JEVTANA [Suspect]
     Active Substance: CABAZITAXEL
     Dosage: UNK, QCY
  3. JEVTANA [Suspect]
     Active Substance: CABAZITAXEL
     Dosage: UNK
     Dates: start: 20181101, end: 20181101

REACTIONS (3)
  - Prostatic specific antigen increased [Unknown]
  - Pneumonia [Unknown]
  - Incorrect product administration duration [Unknown]
